FAERS Safety Report 7122795-9 (Version None)
Quarter: 2010Q4

REPORT INFORMATION
  Report Type: 
  Country: None (occurrence: None)
  Receive Date: 20101124
  Receipt Date: 20101117
  Transmission Date: 20110411
  Serious: Yes (Other)
  Sender: FDA-Public Use
  Company Number: US-GENENTECH-307200

PATIENT
  Sex: Male
  Weight: 79.365 kg

DRUGS (1)
  1. XOLAIR [Suspect]
     Indication: ASTHMA
     Dosage: 375 MG, Q2W
     Route: 058
     Dates: start: 20080514

REACTIONS (3)
  - ARTHROPATHY [None]
  - PALINDROMIC RHEUMATISM [None]
  - SERUM SICKNESS [None]
